FAERS Safety Report 6891970-0 (Version None)
Quarter: 2010Q3

REPORT INFORMATION
  Report Type: 
  Country: None (occurrence: None)
  Receive Date: 20100731
  Receipt Date: 20071213
  Transmission Date: 20110219
  Serious: No
  Sender: FDA-Public Use
  Company Number: US-PFIZER INC-2007105064

PATIENT
  Sex: Male

DRUGS (2)
  1. NEURONTIN [Suspect]
  2. PROVIGIL [Concomitant]
     Indication: SOMNOLENCE
     Route: 048
     Dates: start: 20070801

REACTIONS (1)
  - OEDEMA PERIPHERAL [None]
